FAERS Safety Report 21259231 (Version 2)
Quarter: 2022Q3

REPORT INFORMATION
  Report Type: Spontaneous
  Country: US (occurrence: US)
  Receive Date: 20220826
  Receipt Date: 20220927
  Transmission Date: 20221027
  Serious: No
  Sender: FDA-Public Use
  Company Number: US-PFIZER INC-PV202200049750

PATIENT
  Age: 64 Year
  Sex: Male

DRUGS (1)
  1. XELJANZ [Suspect]
     Active Substance: TOFACITINIB CITRATE
     Dosage: UNK
     Dates: end: 20220911

REACTIONS (4)
  - Sensitivity to weather change [Unknown]
  - Condition aggravated [Not Recovered/Not Resolved]
  - Rheumatoid nodule [Unknown]
  - Product dose omission issue [Unknown]
